FAERS Safety Report 5196310-3 (Version None)
Quarter: 2006Q4

REPORT INFORMATION
  Report Type: 
  Country: None (occurrence: None)
  Receive Date: 20061222
  Receipt Date: 20061211
  Transmission Date: 20070319
  Serious: Yes (Other)
  Sender: FDA-Public Use
  Company Number: 2006151579

PATIENT

DRUGS (1)
  1. CARDURA [Suspect]

REACTIONS (1)
  - CHOLELITHIASIS [None]
